FAERS Safety Report 11030817 (Version 1)
Quarter: 2015Q2

REPORT INFORMATION
  Report Type: Spontaneous
  Country: US (occurrence: None)
  Receive Date: 20150414
  Receipt Date: 20150414
  Transmission Date: 20150821
  Serious: Yes (Other)
  Sender: FDA-Public Use
  Company Number: None

PATIENT
  Age: 74 Year
  Sex: Female
  Weight: 70.76 kg

DRUGS (14)
  1. VITAMIN B COMPLEX [Concomitant]
     Active Substance: CYANOCOBALAMIN\DEXPANTHENOL\NIACINAMIDE\PYRIDOXINE HYDROCHLORIDE\RIBOFLAVIN 5^-PHOSPHATE SODIUM\THIAMINE HYDROCHLORIDE\VITAMIN B COMPLEX
  2. WELCHOL [Suspect]
     Active Substance: COLESEVELAM HYDROCHLORIDE
     Indication: BLOOD CHOLESTEROL INCREASED
     Dosage: 1 PACKET
     Route: 048
     Dates: start: 20140114, end: 20150320
  3. RALOXIFENE [Concomitant]
     Active Substance: RALOXIFENE
  4. LOSARTAN [Concomitant]
     Active Substance: LOSARTAN
  5. MEDROXYPR [Concomitant]
  6. METFORMIN [Concomitant]
     Active Substance: METFORMIN HYDROCHLORIDE
  7. WELCHOL [Suspect]
     Active Substance: COLESEVELAM HYDROCHLORIDE
     Indication: GLYCOSYLATED HAEMOGLOBIN INCREASED
     Dosage: 1 PACKET
     Route: 048
     Dates: start: 20140114, end: 20150320
  8. LEVOTHYROXIN [Concomitant]
     Active Substance: LEVOTHYROXINE
  9. D3 [Concomitant]
     Active Substance: 25-HYDROXYCHOLECALCIFEROL, 5-TRANS-
  10. MAGNESIUM [Concomitant]
     Active Substance: MAGNESIUM
  11. PRAVASTATIN [Concomitant]
     Active Substance: PRAVASTATIN\PRAVASTATIN SODIUM
  12. COQ10 [Concomitant]
     Active Substance: UBIDECARENONE
  13. MILK THISTLE [Concomitant]
     Active Substance: MILK THISTLE
  14. VITAMIN B12 [Concomitant]
     Active Substance: CYANOCOBALAMIN

REACTIONS (3)
  - Gastrointestinal pain [None]
  - Diarrhoea [None]
  - Painful defaecation [None]

NARRATIVE: CASE EVENT DATE: 20150114
